FAERS Safety Report 24378910 (Version 1)
Quarter: 2024Q3

REPORT INFORMATION
  Report Type: Report from Study
  Country: US (occurrence: US)
  Receive Date: 20240930
  Receipt Date: 20240930
  Transmission Date: 20241016
  Serious: No
  Sender: SANDOZ
  Company Number: US-SANDOZ-SDZ2024US075378

PATIENT
  Sex: Female

DRUGS (2)
  1. OMNITROPE [Suspect]
     Active Substance: SOMATROPIN
     Indication: Hypopituitarism
     Dosage: 1.0 MG
     Route: 058
     Dates: start: 20240823, end: 20240826
  2. OMNITROPE [Suspect]
     Active Substance: SOMATROPIN
     Indication: Hypopituitarism
     Dosage: 1.0 MG
     Route: 058
     Dates: start: 20240823, end: 20240826

REACTIONS (3)
  - Injection site erythema [Not Recovered/Not Resolved]
  - Tachycardia [Unknown]
  - Tri-iodothyronine increased [Unknown]

NARRATIVE: CASE EVENT DATE: 20240101
